FAERS Safety Report 7079662-9 (Version None)
Quarter: 2010Q4

REPORT INFORMATION
  Report Type: 
  Country: None (occurrence: None)
  Receive Date: 20101102
  Receipt Date: 20101021
  Transmission Date: 20110411
  Serious: Yes (Hospitalization, Other)
  Sender: FDA-Public Use
  Company Number: PHHY2010FR40249

PATIENT
  Sex: Female

DRUGS (5)
  1. NEORAL [Suspect]
     Indication: APLASIA
     Dosage: 200 MG, BID
     Dates: start: 20100612, end: 20100615
  2. ZELITREX                                /DEN/ [Concomitant]
  3. ESOMEPRAZOLE [Concomitant]
  4. CORTICOSTEROID NOS [Concomitant]
  5. CONTRACEPTIVES NOS [Concomitant]

REACTIONS (15)
  - ALANINE AMINOTRANSFERASE INCREASED [None]
  - APLASIA [None]
  - BLOOD CREATININE INCREASED [None]
  - CONVULSION [None]
  - CYTOLYTIC HEPATITIS [None]
  - GRAND MAL CONVULSION [None]
  - HAEMOGLOBIN DECREASED [None]
  - HEADACHE [None]
  - HEMIPARESIS [None]
  - LOSS OF CONSCIOUSNESS [None]
  - MALAISE [None]
  - REVERSIBLE POSTERIOR LEUKOENCEPHALOPATHY SYNDROME [None]
  - VISION BLURRED [None]
  - VOMITING [None]
  - WHITE BLOOD CELL COUNT DECREASED [None]
